FAERS Safety Report 9690598 (Version 1)
Quarter: 2013Q4

REPORT INFORMATION
  Report Type: Spontaneous
  Country: US (occurrence: None)
  Receive Date: 20131114
  Receipt Date: 20131114
  Transmission Date: 20140711
  Serious: No
  Sender: FDA-Public Use
  Company Number: None

PATIENT
  Age: 35 Year
  Sex: Female

DRUGS (5)
  1. TECFIDERA 120 MG BIOGEN [Suspect]
     Indication: MULTIPLE SCLEROSIS
     Dosage: 1 CAPSULE
     Route: 048
     Dates: start: 20131107, end: 20131113
  2. LEVOTHYROXINE [Concomitant]
  3. NAPROXEN [Concomitant]
  4. ACYCLOVIR [Concomitant]
  5. COSAMIN DS [Concomitant]

REACTIONS (1)
  - Oropharyngeal pain [None]
